FAERS Safety Report 6556787-5 (Version None)
Quarter: 2010Q1

REPORT INFORMATION
  Report Type: 
  Country: None (occurrence: None)
  Receive Date: 20100128
  Receipt Date: 20100115
  Transmission Date: 20100710
  Serious: Yes (Hospitalization, Other)
  Sender: FDA-Public Use
  Company Number: PHHY2010ES02726

PATIENT
  Age: 25 Year
  Sex: Male

DRUGS (6)
  1. CERTICAN [Suspect]
     Indication: LUNG TRANSPLANT
     Dosage: 2 MG, QD
     Route: 048
  2. MYFORTIC [Suspect]
     Indication: LUNG TRANSPLANT
     Dosage: 360 MG, UNK
     Route: 048
  3. OMEPRAZOL [Concomitant]
  4. DACORTIN [Concomitant]
     Dosage: 5 MG, UNK
     Route: 048
  5. SEPTRIN FORTE [Concomitant]
  6. ZITHROMAX [Concomitant]

REACTIONS (3)
  - CYTOMEGALOVIRUS INFECTION [None]
  - FEBRILE NEUTROPENIA [None]
  - LYMPHOPROLIFERATIVE DISORDER [None]
